FAERS Safety Report 9748237 (Version 1)
Quarter: 2013Q4

REPORT INFORMATION
  Report Type: Spontaneous
  Country: US (occurrence: None)
  Receive Date: 20131209
  Receipt Date: 20131209
  Transmission Date: 20140711
  Serious: No
  Sender: FDA-Public Use
  Company Number: None

PATIENT
  Sex: Male

DRUGS (1)
  1. JAKAFI [Suspect]
     Indication: PROSTATE CANCER
     Route: 048
     Dates: start: 20121113, end: 20131031

REACTIONS (3)
  - Transfusion [None]
  - Condition aggravated [None]
  - Unevaluable event [None]
